FAERS Safety Report 5736838-8 (Version None)
Quarter: 2008Q2

REPORT INFORMATION
  Report Type: 
  Country: None (occurrence: None)
  Receive Date: 20080513
  Receipt Date: 20080414
  Transmission Date: 20081010
  Serious: Yes (Other)
  Sender: FDA-Public Use
  Company Number: FR-GENENTECH-260880

PATIENT
  Age: 47 Year
  Sex: Male

DRUGS (5)
  1. MABTHERA [Suspect]
     Indication: HEPATITIS C
     Dosage: UNK UNK, UNKNOWN
     Route: 065
  2. MABTHERA [Suspect]
     Indication: CRYOGLOBULINAEMIA
  3. MYCOPHENOLATE MOFETIL [Suspect]
     Indication: DRUG USE FOR UNKNOWN INDICATION
     Dosage: 2 G, UNKNOWN
     Route: 065
  4. PREDNISONE TAB [Suspect]
     Indication: DRUG USE FOR UNKNOWN INDICATION
     Dosage: 5 MG, UNKNOWN
     Route: 065
  5. CYCLOSPORINE [Suspect]
     Indication: DRUG USE FOR UNKNOWN INDICATION
     Dosage: 100 MG, UNKNOWN
     Route: 065

REACTIONS (2)
  - CELLULITIS STAPHYLOCOCCAL [None]
  - CYTOMEGALOVIRUS INFECTION [None]
